FAERS Safety Report 25744126 (Version 1)
Quarter: 2025Q3

REPORT INFORMATION
  Report Type: Spontaneous
  Country: US (occurrence: US)
  Receive Date: 20250831
  Receipt Date: 20250831
  Transmission Date: 20251021
  Serious: No
  Sender: VELOXIS PHARMACEUTICALS
  Company Number: US-VELOXIS PHARMACEUTICALS, INC.-2024-VEL-00461

PATIENT
  Age: 12 Year
  Sex: Male
  Weight: 36 kg

DRUGS (1)
  1. ENVARSUS XR [Suspect]
     Active Substance: TACROLIMUS
     Indication: Renal transplant

REACTIONS (2)
  - Blood creatinine increased [Unknown]
  - Product use issue [Unknown]
